FAERS Safety Report 5670988-X (Version None)
Quarter: 2008Q1

REPORT INFORMATION
  Report Type: 
  Country: None (occurrence: None)
  Receive Date: 20080318
  Receipt Date: 20080307
  Transmission Date: 20080703
  Serious: Yes (Other)
  Sender: FDA-Public Use
  Company Number: US-JNJFOC-20080302438

PATIENT
  Age: 59 Year
  Sex: Female

DRUGS (3)
  1. TOPAMAX [Suspect]
     Indication: MIGRAINE PROPHYLAXIS
     Route: 048
  2. NORCOR [Concomitant]
     Indication: PAIN
     Route: 048
  3. UNITHROID [Concomitant]
     Indication: HYPOTHYROIDISM
     Dosage: ^YEARS^
     Route: 048

REACTIONS (4)
  - NEPHROLITHIASIS [None]
  - SCAR [None]
  - URETERAL DISORDER [None]
  - URETERIC INJURY [None]
